FAERS Safety Report 7141080-2 (Version None)
Quarter: 2010Q4

REPORT INFORMATION
  Report Type: 
  Country: None (occurrence: None)
  Receive Date: 20101201
  Receipt Date: 20101201
  Transmission Date: 20110411
  Serious: Yes (Life-Threatening)
  Sender: FDA-Public Use
  Company Number: None

PATIENT
  Age: 54 Year
  Sex: Male

DRUGS (1)
  1. TRAMADOL HCL [Suspect]
     Indication: PAIN
     Dosage: 50 MG ONCE PO
     Route: 048
     Dates: start: 20101103, end: 20101103

REACTIONS (3)
  - CONVULSION [None]
  - CONVULSIVE THRESHOLD LOWERED [None]
  - POSTICTAL STATE [None]
